FAERS Safety Report 6940708-7 (Version None)
Quarter: 2010Q3

REPORT INFORMATION
  Report Type: 
  Country: None (occurrence: None)
  Receive Date: 20100825
  Receipt Date: 20100816
  Transmission Date: 20110219
  Serious: Yes (Hospitalization)
  Sender: FDA-Public Use
  Company Number: DE-ROCHE-720255

PATIENT
  Sex: Female

DRUGS (7)
  1. TRASTUZUMAB [Suspect]
     Indication: BREAST CANCER
     Dosage: LOADING DOSE.
     Route: 042
     Dates: start: 20100617
  2. TRASTUZUMAB [Suspect]
     Dosage: MAINTENANCE DOSE.LAST DOSE PRIOR TO SAE ON 15 JULY 2010. INTRRUPTED.
     Route: 042
     Dates: start: 20100624
  3. TRASTUZUMAB [Suspect]
     Dosage: DOSE:160MG. RESTARTED.NEXT THERAPY SCHEDULED ON: 12 AUGUST 2010
     Route: 042
     Dates: start: 20100805
  4. LAPATINIB [Suspect]
     Indication: BREAST CANCER
     Dosage: INTRRUPTED.
     Route: 048
     Dates: start: 20100617
  5. LAPATINIB [Suspect]
     Dosage: RESTARTED
     Route: 048
     Dates: start: 20100805
  6. PACLITAXEL [Suspect]
     Indication: BREAST CANCER
     Dosage: INTRRUPTED.
     Route: 042
     Dates: start: 20100617
  7. PACLITAXEL [Suspect]
     Dosage: DOSE: (150MG). RESTARTED.NEXT THERAPY SCHEDULED ON: 12 AUGUST 2010
     Route: 042
     Dates: start: 20100805

REACTIONS (1)
  - CIRCULATORY COLLAPSE [None]
